FAERS Safety Report 10251848 (Version 1)
Quarter: 2014Q2

REPORT INFORMATION
  Report Type: Spontaneous
  Country: US (occurrence: None)
  Receive Date: 20140619
  Receipt Date: 20140619
  Transmission Date: 20141212
  Serious: Yes (Hospitalization)
  Sender: FDA-Public Use
  Company Number: UCM201406-000101

PATIENT
  Age: 75 Year
  Sex: Male

DRUGS (5)
  1. TOPIRAMATE (TOPIRAMATE) (TOPIRAMATE) [Suspect]
     Indication: DEMENTIA ALZHEIMER^S TYPE
  2. AMITRIPTYLINE (AMITRIPTYLINE) (AMITRIPTYLINE) [Suspect]
     Indication: DEMENTIA ALZHEIMER^S TYPE
  3. CHLORDIAZEPOXIDE (CHLORDIAZEPOXIDE) (CHLORDIAZEPOXIDE) [Suspect]
     Indication: DEMENTIA ALZHEIMER^S TYPE
  4. OLANZAPINE (OLANZAPINE) (OLANZAPINE) [Suspect]
     Indication: DEMENTIA ALZHEIMER^S TYPE
  5. HALOPERIDOL (HALOPERIDOL) (HALOPERIDOL) [Concomitant]

REACTIONS (2)
  - Delusion [None]
  - Aggression [None]
